FAERS Safety Report 21163280 (Version 2)
Quarter: 2022Q3

REPORT INFORMATION
  Report Type: Report from Study
  Country: US (occurrence: US)
  Receive Date: 20220802
  Receipt Date: 20220811
  Transmission Date: 20221026
  Serious: No
  Sender: FDA-Public Use
  Company Number: US-SUNOVION-2022SUN002307

PATIENT
  Age: 51 Year
  Sex: Male

DRUGS (1)
  1. KYNMOBI [Suspect]
     Active Substance: APOMORPHINE HYDROCHLORIDE
     Dosage: 25 MG
     Route: 060
     Dates: start: 20220706

REACTIONS (2)
  - Nightmare [Unknown]
  - Insomnia [Unknown]

NARRATIVE: CASE EVENT DATE: 20220728
